FAERS Safety Report 7519257-3 (Version None)
Quarter: 2011Q2

REPORT INFORMATION
  Report Type: 
  Country: None (occurrence: None)
  Receive Date: 20110523
  Receipt Date: 20110511
  Transmission Date: 20111010
  Serious: Yes (Hospitalization)
  Sender: FDA-Public Use
  Company Number: DSA_46700_2011

PATIENT
  Age: 81 Year
  Sex: Male

DRUGS (7)
  1. BEHEPAN [Concomitant]
  2. TROMBYL [Concomitant]
  3. ENALAPRIL MALEATE [Suspect]
     Indication: ESSENTIAL HYPERTENSION
     Dosage: (20 MG QD ORAL) ; (10 MG QD ORAL)
     Route: 048
  4. LEVOTHYROXINE SODIUM [Concomitant]
  5. ALLOPURINOL [Concomitant]
  6. FELODIPINE [Suspect]
     Indication: ESSENTIAL HYPERTENSION
     Dosage: (DF ORAL)
     Route: 048
     Dates: end: 20110101
  7. SIMVASTATIN [Concomitant]

REACTIONS (5)
  - SYNCOPE [None]
  - STARVATION [None]
  - CONVULSION [None]
  - DECREASED APPETITE [None]
  - HYPOVOLAEMIA [None]
